FAERS Safety Report 25995437 (Version 2)
Quarter: 2025Q4

REPORT INFORMATION
  Report Type: Spontaneous
  Country: EU (occurrence: EU)
  Receive Date: 20251104
  Receipt Date: 20251125
  Transmission Date: 20260118
  Serious: Yes (Hospitalization)
  Sender: ALEXION PHARMACEUTICALS
  Company Number: None

PATIENT
  Age: 77 Year
  Sex: Female
  Weight: 60 kg

DRUGS (11)
  1. TEZSPIRE [Suspect]
     Active Substance: TEZEPELUMAB-EKKO
     Indication: Asthma
     Dosage: 1 DOSAGE FORM, Q4W
     Route: 065
     Dates: start: 20250822, end: 20251003
  2. TEZSPIRE [Suspect]
     Active Substance: TEZEPELUMAB-EKKO
  3. METOPROLOL [Concomitant]
     Active Substance: METOPROLOL
     Dosage: 23,75 MG/DAG
  4. RIVAROXABAN [Concomitant]
     Active Substance: RIVAROXABAN
     Dosage: TABLET, 20 MG (MILLIGRAM)
  5. DIGOXIN [Concomitant]
     Active Substance: DIGOXIN
     Dosage: TABLET, 0,0625 MG (MILLIGRAM)
  6. METFORMIN HYDROCHLORIDE [Concomitant]
     Active Substance: METFORMIN HYDROCHLORIDE
     Dosage: 2X 1000 MG /DAG
  7. ROSUVASTATIN [Concomitant]
     Active Substance: ROSUVASTATIN
     Dosage: TABLET, 5 MG (MILLIGRAM)
  8. SPIRONOLACTONE [Concomitant]
     Active Substance: SPIRONOLACTONE
     Dosage: TABLET, 12,5 MG (MILLIGRAM)
  9. BECLOMETHASONE\FORMOTEROL [Concomitant]
     Active Substance: BECLOMETHASONE\FORMOTEROL
     Dosage: 4 DOSES X 6 MICRO /DAG
  10. INSULIN GLARGINE [Concomitant]
     Active Substance: INSULIN GLARGINE
     Dosage: INJECTIEVLOEISTOF, 100 EENHEDEN/ML (EENHEDEN PER MILLILITER)
     Route: 065
  11. INSULIN ASPART [Concomitant]
     Active Substance: INSULIN ASPART
     Dosage: INJECTIEVLOEISTOF, 100 EENHEDEN/ML (EENHEDEN PER MILLILITER)
     Route: 065

REACTIONS (5)
  - Abdominal discomfort [Recovered/Resolved]
  - Constipation [Recovered/Resolved]
  - Nausea [Recovered/Resolved]
  - Fatigue [Recovered/Resolved]
  - Asthma [Recovered/Resolved]
